FAERS Safety Report 7276137-9 (Version None)
Quarter: 2011Q1

REPORT INFORMATION
  Report Type: 
  Country: None (occurrence: None)
  Receive Date: 20110204
  Receipt Date: 20110125
  Transmission Date: 20110831
  Serious: Yes (Other)
  Sender: FDA-Public Use
  Company Number: PHHY2011NL06016

PATIENT
  Sex: Male

DRUGS (3)
  1. SODIUM CHLORIDE [Concomitant]
  2. ZOMETA [Suspect]
     Dosage: UNK
     Dates: start: 20110107
  3. ZOMETA [Suspect]
     Indication: PROSTATE CANCER METASTATIC
     Route: 042
     Dates: start: 20090814

REACTIONS (1)
  - TERMINAL STATE [None]
